FAERS Safety Report 21932577 (Version 2)
Quarter: 2023Q1

REPORT INFORMATION
  Report Type: Spontaneous
  Country: US (occurrence: US)
  Receive Date: 20230131
  Receipt Date: 20230206
  Transmission Date: 20230418
  Serious: Yes (Other)
  Sender: FDA-Public Use
  Company Number: US-JUBILANT CADISTA PHARMACEUTICALS-2023JUB00038

PATIENT
  Age: 56 Year
  Sex: Female

DRUGS (13)
  1. METHYLPREDNISOLONE [Suspect]
     Active Substance: METHYLPREDNISOLONE
     Indication: Glomerulonephritis rapidly progressive
     Dosage: UNK,
  2. METHYLPREDNISOLONE [Suspect]
     Active Substance: METHYLPREDNISOLONE
     Indication: Immunosuppressant drug therapy
     Dosage: UNK, PULSE
  3. MYCOPHENOLATE MOFETIL [Suspect]
     Active Substance: MYCOPHENOLATE MOFETIL
     Indication: Immunosuppressant drug therapy
     Dosage: 750 MG, EVERY 12 HOUR
  4. PREDNISONE [Suspect]
     Active Substance: PREDNISONE
     Indication: Immunosuppressant drug therapy
     Dosage: 80 MG, 1X/DAY
     Route: 048
  5. PREDNISONE [Suspect]
     Active Substance: PREDNISONE
     Indication: Anti-neutrophil cytoplasmic antibody positive vasculitis
     Dosage: 5 MG, 1X/DAY
  6. RITUXIMAB [Suspect]
     Active Substance: RITUXIMAB
     Indication: Anti-neutrophil cytoplasmic antibody positive vasculitis
     Dosage: UNK, REPEAT DOSE OF RITUXIMAB (CUMULATIVE DOSE: 2{DF})
  7. RITUXIMAB [Suspect]
     Active Substance: RITUXIMAB
     Dosage: 1000 MG
  8. TACROLIMUS [Suspect]
     Active Substance: TACROLIMUS
     Indication: Immunosuppressant drug therapy
     Dosage: UNK
  9. CYCLOPHOSPHAMIDE [Suspect]
     Active Substance: CYCLOPHOSPHAMIDE
     Indication: Orbital granuloma
  10. THYMOGLOBULIN [Suspect]
     Active Substance: LAPINE T-LYMPHOCYTE IMMUNE GLOBULIN
     Indication: Immunosuppressant drug therapy
     Dosage: 2 MG/KG, 1 EVERY DAY; POST-OPERATIVE DAYS 0, 1, AND 2 (CUMULATIVE DOSE: 6MG/KG)
  11. BELATACEPT [Suspect]
     Active Substance: BELATACEPT
     Indication: Immunosuppressant drug therapy
     Dosage: 10 MG/KG, 1X/DAY, 10 MG/KG ON POSTOPERATIVE DAYS 0, 4, 14, AND 28 (CUMULATIVE DOSE: 140 MG/KG)
  12. AZATHIOPRINE [Suspect]
     Active Substance: AZATHIOPRINE
     Indication: Orbital granuloma
  13. SULFAMETHOXAZOLE AND TRIMETHOPRIM [Concomitant]
     Active Substance: SULFAMETHOXAZOLE\TRIMETHOPRIM
     Indication: Prophylaxis
     Dosage: UNK

REACTIONS (3)
  - Pulmonary nocardiosis [Unknown]
  - Polyomavirus viraemia [Recovering/Resolving]
  - Cytomegalovirus viraemia [Recovering/Resolving]
